FAERS Safety Report 6893029-5 (Version None)
Quarter: 2010Q3

REPORT INFORMATION
  Report Type: 
  Country: None (occurrence: None)
  Receive Date: 20100731
  Receipt Date: 20090203
  Transmission Date: 20110219
  Serious: No
  Sender: FDA-Public Use
  Company Number: US-PFIZER INC-2007061877

PATIENT
  Sex: Female
  Weight: 114.5 kg

DRUGS (17)
  1. NEURONTIN [Suspect]
     Dosage: 800 MG, 4X/DAY
     Route: 048
     Dates: start: 20050101
  2. LYRICA [Suspect]
     Dosage: 50 MG, 3X/DAY
  3. SEROQUEL [Suspect]
  4. DEPAKOTE [Suspect]
  5. NITROGLYCERIN [Concomitant]
     Indication: HYPERTENSION
     Route: 048
  6. NEXIUM [Concomitant]
     Route: 048
  7. METOPROLOL TARTRATE [Concomitant]
     Route: 048
  8. CLONIDINE [Concomitant]
     Route: 048
  9. KLONOPIN [Concomitant]
     Route: 048
  10. LEXAPRO [Concomitant]
     Route: 048
  11. ACETYLSALICYLIC ACID SRT [Concomitant]
     Route: 048
  12. NORVASC [Concomitant]
     Indication: HYPERTENSION
     Route: 048
  13. MAXIDEX [Concomitant]
     Indication: HYPERTENSION
     Route: 048
  14. CARDURA [Concomitant]
     Indication: HYPERTENSION
     Route: 048
  15. DILANTIN [Concomitant]
     Indication: CONVULSION
     Route: 048
  16. CADUET [Concomitant]
  17. AMITRIPTYLINE [Concomitant]
     Dosage: UNK

REACTIONS (15)
  - ARTHRALGIA [None]
  - BLOOD CHOLESTEROL INCREASED [None]
  - DIZZINESS [None]
  - DRUG DOSE OMISSION [None]
  - DRUG INEFFECTIVE [None]
  - DRUG WITHDRAWAL SYNDROME [None]
  - INTENTIONAL DRUG MISUSE [None]
  - MALAISE [None]
  - MOVEMENT DISORDER [None]
  - NAUSEA [None]
  - OEDEMA PERIPHERAL [None]
  - PAIN [None]
  - PAIN IN EXTREMITY [None]
  - SKIN DISCOLOURATION [None]
  - VOMITING [None]
